FAERS Safety Report 9816131 (Version 2)
Quarter: 2014Q1

REPORT INFORMATION
  Report Type: Spontaneous
  Country: RS (occurrence: RS)
  Receive Date: 20140114
  Receipt Date: 20140115
  Transmission Date: 20141002
  Serious: Yes (Other)
  Sender: FDA-Public Use
  Company Number: RS-PFIZER INC-2014010268

PATIENT
  Age: 62 Year
  Sex: Female
  Weight: 69 kg

DRUGS (5)
  1. LYRICA [Suspect]
     Indication: HEADACHE
     Dosage: 75 MG, 1X/DAY; 0+0+1, TAKEN FOR 3 DAYS
     Route: 048
     Dates: start: 20130824
  2. LYRICA [Suspect]
     Dosage: 75 MG, 2X/DAY; 1+0+1, TAKEN FOR 3 DAYS
     Route: 048
     Dates: start: 20130827
  3. LYRICA [Suspect]
     Dosage: 75 MG+150MG, 2X/DAY; 1+0+2, TAKEN FOR 3 DAYS
     Route: 048
     Dates: start: 20130830
  4. LYRICA [Suspect]
     Dosage: 150 MG, 2X/DAY; 2+0+2
     Route: 048
     Dates: start: 20130902, end: 20130910
  5. TRAMADOL [Concomitant]
     Indication: HEADACHE
     Dosage: 100 MG, 4X/DAY
     Route: 048

REACTIONS (5)
  - Off label use [Unknown]
  - Weight increased [Recovered/Resolved]
  - Generalised oedema [Recovered/Resolved]
  - Memory impairment [Recovered/Resolved]
  - Confusional state [Recovered/Resolved]
